FAERS Safety Report 9718783 (Version 1)
Quarter: 2013Q4

REPORT INFORMATION
  Report Type: Spontaneous
  Country: US (occurrence: None)
  Receive Date: 20131125
  Receipt Date: 20131125
  Transmission Date: 20140711
  Serious: Yes (Other)
  Sender: FDA-Public Use
  Company Number: 2013P1021205

PATIENT
  Age: 41 Year
  Sex: Male
  Weight: 57.15 kg

DRUGS (5)
  1. PODOFILOX [Suspect]
     Indication: ANOGENITAL WARTS
     Route: 061
     Dates: start: 201109, end: 20111129
  2. SODIUM SULFACETAMIDE [Suspect]
     Indication: EYE DISORDER
     Dates: start: 20111130
  3. BACITRACIN [Suspect]
     Indication: EYE DISORDER
     Dates: start: 20111201
  4. LOTEMAX [Suspect]
     Indication: EYE DISORDER
     Dates: start: 20111201
  5. CONDYLOX [Suspect]

REACTIONS (5)
  - Incorrect route of drug administration [None]
  - Eye irritation [None]
  - Eye discharge [None]
  - Visual impairment [None]
  - Blepharitis [None]
